FAERS Safety Report 9166055 (Version 2)
Quarter: 2013Q1

REPORT INFORMATION
  Report Type: Spontaneous
  Country: JP (occurrence: JP)
  Receive Date: 20130315
  Receipt Date: 20130325
  Transmission Date: 20140127
  Serious: Yes (Hospitalization)
  Sender: FDA-Public Use
  Company Number: JP-ASTRAZENECA-2013SE16526

PATIENT
  Age: 62 Year
  Sex: Female

DRUGS (1)
  1. SEROQUEL [Suspect]
     Indication: SCHIZOPHRENIA
     Dosage: 750 MG DAILY (7 TABLETS OF QUETIAPINE FUMARATE 100 MG AND 2 TABLETS OF QUETIAPINE FUMARATE 25 MG)
     Route: 048
     Dates: end: 20130226

REACTIONS (1)
  - Ileus paralytic [Not Recovered/Not Resolved]
